FAERS Safety Report 10866121 (Version 1)
Quarter: 2015Q1

REPORT INFORMATION
  Report Type: Spontaneous
  Country: US (occurrence: None)
  Receive Date: 20150219
  Receipt Date: 20150219
  Transmission Date: 20150721
  Serious: Yes (Hospitalization, Disabling, Other)
  Sender: FDA-Public Use
  Company Number: None

PATIENT
  Age: 75 Year
  Sex: Female

DRUGS (7)
  1. SEROQUEL XR [Suspect]
     Active Substance: QUETIAPINE FUMARATE
     Indication: BIPOLAR DISORDER
     Route: 048
     Dates: start: 20081215, end: 20141201
  2. SEROQUEL XR [Suspect]
     Active Substance: QUETIAPINE FUMARATE
     Indication: DEPRESSION
     Route: 048
     Dates: start: 20081215, end: 20141201
  3. CELEBREX [Concomitant]
     Active Substance: CELECOXIB
  4. KLONOPIN [Concomitant]
     Active Substance: CLONAZEPAM
  5. D-3 [Concomitant]
     Active Substance: CHOLECALCIFEROL
  6. SUMATRIPTAN. [Concomitant]
     Active Substance: SUMATRIPTAN
  7. VITAMIN E [Concomitant]
     Active Substance: .ALPHA.-TOCOPHEROL

REACTIONS (10)
  - Muscle twitching [None]
  - Myalgia [None]
  - Urticaria [None]
  - Erythema [None]
  - Drug ineffective [None]
  - Initial insomnia [None]
  - Rapid eye movements sleep abnormal [None]
  - Middle insomnia [None]
  - Pruritus [None]
  - Therapy cessation [None]

NARRATIVE: CASE EVENT DATE: 20141007
